FAERS Safety Report 17464121 (Version 2)
Quarter: 2020Q1

REPORT INFORMATION
  Report Type: Spontaneous
  Country: US (occurrence: US)
  Receive Date: 20200226
  Receipt Date: 20200326
  Transmission Date: 20200409
  Serious: No
  Sender: FDA-Public Use
  Company Number: US-GLAXOSMITHKLINE-US2020031204

PATIENT
  Sex: Male

DRUGS (3)
  1. ABREVA [Suspect]
     Active Substance: DOCOSANOL
     Dosage: UNK,(5TIMES DAY)
     Dates: start: 20200130, end: 20200219
  2. ABREVA [Suspect]
     Active Substance: DOCOSANOL
     Dosage: UNK
  3. ABREVA [Suspect]
     Active Substance: DOCOSANOL
     Indication: ORAL HERPES
     Dosage: UNK,(5TIMES DAY)
     Route: 065
     Dates: start: 20200130, end: 20200219

REACTIONS (2)
  - Drug ineffective [Unknown]
  - Incorrect product administration duration [Unknown]
